FAERS Safety Report 9870482 (Version 1)
Quarter: 2014Q1

REPORT INFORMATION
  Report Type: Spontaneous
  Country: CL (occurrence: CL)
  Receive Date: 20140205
  Receipt Date: 20140205
  Transmission Date: 20141002
  Serious: Yes (Other)
  Sender: FDA-Public Use
  Company Number: CL-PFIZER INC-2014032044

PATIENT
  Age: 71 Year
  Sex: Female

DRUGS (4)
  1. XALATAN [Suspect]
     Indication: GLAUCOMA
     Dosage: 1 GTT (1 DROP), 1X/DAY
     Dates: start: 2009
  2. GLIBENCLAMIDE [Concomitant]
     Indication: DIABETES MELLITUS
     Dosage: 5 MG, 3X/DAY
     Dates: start: 2004
  3. METFORMIN [Concomitant]
     Indication: DIABETES MELLITUS
     Dosage: 800 MG, 2X/DAY
     Dates: start: 2007
  4. LOSARTAN [Concomitant]
     Indication: HYPERTENSION
     Dosage: 50 MG, 1X/DAY
     Dates: start: 2011

REACTIONS (2)
  - Upper limb fracture [Not Recovered/Not Resolved]
  - Cataract [Not Recovered/Not Resolved]
